FAERS Safety Report 6096657-2 (Version None)
Quarter: 2009Q1

REPORT INFORMATION
  Report Type: 
  Country: None (occurrence: None)
  Receive Date: 20090225
  Receipt Date: 20090210
  Transmission Date: 20090719
  Serious: Yes (Hospitalization)
  Sender: FDA-Public Use
  Company Number: 0349

PATIENT
  Age: 78 Year
  Sex: Male

DRUGS (5)
  1. METHYLDOPA [Suspect]
     Indication: HYPERTENSION
     Dosage: 250 MG PO
     Route: 048
     Dates: end: 20090119
  2. NIFEDIPINE [Concomitant]
  3. CANDESARTAN CILEXETIL [Concomitant]
  4. TWO KINDS OF OTHER DRUGS FOR HYPERTENSION [Concomitant]
  5. DIGESTIVE MEDICINE [Concomitant]

REACTIONS (4)
  - ANAEMIA [None]
  - DIALYSIS [None]
  - GASTRIC CANCER [None]
  - MALAISE [None]
